FAERS Safety Report 24135620 (Version 4)
Quarter: 2025Q4

REPORT INFORMATION
  Report Type: Report from Study
  Country: BR (occurrence: BR)
  Receive Date: 20240725
  Receipt Date: 20251021
  Transmission Date: 20260118
  Serious: Yes (Other)
  Sender: TAKEDA
  Company Number: BR-TAKEDA-2024TUS073020

PATIENT
  Age: 38 Year
  Sex: Female

DRUGS (11)
  1. LANADELUMAB [Suspect]
     Active Substance: LANADELUMAB
     Indication: Hereditary angioedema
     Dosage: UNK UNK, Q2WEEKS
     Dates: start: 20220701
  2. LANADELUMAB [Suspect]
     Active Substance: LANADELUMAB
     Dosage: UNK
  3. LANADELUMAB [Suspect]
     Active Substance: LANADELUMAB
     Dosage: UNK
  4. LANADELUMAB [Suspect]
     Active Substance: LANADELUMAB
     Dosage: 150 MILLIGRAM
  5. LANADELUMAB [Suspect]
     Active Substance: LANADELUMAB
     Dosage: 300 MILLIGRAM
  6. FIRAZYR [Suspect]
     Active Substance: ICATIBANT ACETATE
     Indication: Hereditary angioedema
     Dosage: 30 MILLIGRAM
  7. FIRAZYR [Suspect]
     Active Substance: ICATIBANT ACETATE
     Dosage: UNK
  8. HEPARIN [Suspect]
     Active Substance: HEPARIN SODIUM
     Indication: Product used for unknown indication
     Dosage: UNK
  9. DANAZOL [Suspect]
     Active Substance: DANAZOL
     Indication: Product used for unknown indication
     Dosage: UNK
  10. PROGESTERONE [Concomitant]
     Active Substance: PROGESTERONE
     Dosage: UNK
  11. ESTROGENS [Concomitant]
     Active Substance: ESTROGENS
     Dosage: UNK

REACTIONS (16)
  - Abdominal mass [Unknown]
  - Device dislocation [Unknown]
  - Respiration abnormal [Unknown]
  - Vascular device infection [Unknown]
  - Hereditary angioedema [Unknown]
  - Nausea [Unknown]
  - Pain [Unknown]
  - Alopecia [Unknown]
  - Headache [Unknown]
  - Chest discomfort [Unknown]
  - Heart rate increased [Unknown]
  - Vaginal haemorrhage [Recovered/Resolved]
  - Amenorrhoea [Unknown]
  - Haemorrhage [Unknown]
  - Inappropriate schedule of product administration [Unknown]
  - Product availability issue [Recovered/Resolved]

NARRATIVE: CASE EVENT DATE: 20170101
